FAERS Safety Report 8818602 (Version 2)
Quarter: 2014Q2

REPORT INFORMATION
  Report Type: Spontaneous
  Country: US (occurrence: US)
  Receive Date: 20121001
  Receipt Date: 20131017
  Transmission Date: 20141212
  Serious: Yes (Other)
  Sender: FDA-Public Use
  Company Number: US-PFIZER INC-2012239360

PATIENT
  Age: 50 Year
  Sex: Female
  Weight: 52.15 kg

DRUGS (2)
  1. PREMPRO [Suspect]
     Indication: MENOPAUSAL SYMPTOMS
     Dosage: 1 DF (0.625 MG/5 MG), ONCE A DAY
     Route: 048
     Dates: start: 2012
  2. XANAX [Concomitant]
     Indication: ANXIETY
     Dosage: UNK, AS NEEDED

REACTIONS (1)
  - Hepatitis [Unknown]
